FAERS Safety Report 25218934 (Version 3)
Quarter: 2025Q2

REPORT INFORMATION
  Report Type: Spontaneous
  Country: CN (occurrence: CN)
  Receive Date: 20250421
  Receipt Date: 20250506
  Transmission Date: 20250717
  Serious: Yes (Life-Threatening, Hospitalization, Other)
  Sender: SANOFI AVENTIS
  Company Number: CN-MLMSERVICE-20250410-PI475479-00249-1

PATIENT
  Age: 61 Year
  Sex: Male

DRUGS (12)
  1. CAPECITABINE [Suspect]
     Active Substance: CAPECITABINE
     Indication: Colon cancer
     Dosage: 3000 MG, QD, XELOX CHEMOTHERAPY: 3000 MG DAY 1-14
     Dates: start: 20200613, end: 20200824
  2. CAPECITABINE [Suspect]
     Active Substance: CAPECITABINE
     Dates: start: 20200704
  3. CAPECITABINE [Suspect]
     Active Substance: CAPECITABINE
     Dates: start: 20200725
  4. CAPECITABINE [Suspect]
     Active Substance: CAPECITABINE
     Dates: start: 20200811
  5. OXALIPLATIN [Suspect]
     Active Substance: OXALIPLATIN
     Indication: Colon cancer
     Dates: start: 20200223, end: 20200530
  6. OXALIPLATIN [Suspect]
     Active Substance: OXALIPLATIN
     Dosage: 200 MG, QD, XELOX CHEMOTHERAPY: 200 MG DAY 1
     Dates: start: 20200613, end: 20200811
  7. OXALIPLATIN [Suspect]
     Active Substance: OXALIPLATIN
     Dates: start: 20200704
  8. OXALIPLATIN [Suspect]
     Active Substance: OXALIPLATIN
     Dates: start: 20200725
  9. OXALIPLATIN [Suspect]
     Active Substance: OXALIPLATIN
     Dates: start: 20200811
  10. FLUOROURACIL [Suspect]
     Active Substance: FLUOROURACIL
     Indication: Colon cancer
     Dates: start: 20200223, end: 20200530
  11. FLUOROURACIL [Suspect]
     Active Substance: FLUOROURACIL
     Dates: start: 20200223, end: 20200225
  12. LEUCOVORIN CALCIUM [Suspect]
     Active Substance: LEUCOVORIN CALCIUM
     Indication: Colon cancer
     Dates: start: 20200223, end: 20200530

REACTIONS (1)
  - Chronic myeloid leukaemia [Recovering/Resolving]

NARRATIVE: CASE EVENT DATE: 20230101
